FAERS Safety Report 6316568-4 (Version None)
Quarter: 2009Q3

REPORT INFORMATION
  Report Type: 
  Country: None (occurrence: None)
  Receive Date: 20090820
  Receipt Date: 20090810
  Transmission Date: 20100115
  Serious: Yes (Other)
  Sender: FDA-Public Use
  Company Number: PHHY2009DE21622

PATIENT
  Sex: Female
  Weight: 60 kg

DRUGS (1)
  1. EXJADE [Suspect]
     Indication: HAEMOSIDEROSIS
     Dosage: 1250 MG/DAY
     Route: 048
     Dates: start: 20080801

REACTIONS (5)
  - CORRECTIVE LENS USER [None]
  - GASTRIC DISORDER [None]
  - MYOPIA [None]
  - VISION BLURRED [None]
  - VISUAL IMPAIRMENT [None]
